FAERS Safety Report 5072804-6 (Version None)
Quarter: 2006Q3

REPORT INFORMATION
  Report Type: 
  Country: None (occurrence: None)
  Receive Date: 20060801
  Receipt Date: 20060726
  Transmission Date: 20061208
  Serious: Yes (Death, Hospitalization)
  Sender: FDA-Public Use
  Company Number: E2020-00122-SPO-JP

PATIENT
  Age: 84 Year
  Sex: Male
  Weight: 70 kg

DRUGS (6)
  1. ARICEPT [Suspect]
     Indication: DEMENTIA ALZHEIMER'S TYPE
     Dosage: 5 MG, 1 IN 1 D, ORAL
     Route: 048
     Dates: start: 20051008, end: 20060602
  2. ALLOTOP-L            (NIFEDIPINE) [Concomitant]
  3. PENSELIN               (DIPYRIDAMOLE) [Concomitant]
  4. MOBIC [Concomitant]
  5. NIZATIDINE [Concomitant]
  6. MADOPAR    (MADOPAR) [Concomitant]

REACTIONS (25)
  - ARTHRALGIA [None]
  - CONDITION AGGRAVATED [None]
  - COORDINATION ABNORMAL [None]
  - DELIRIUM [None]
  - DEMENTIA [None]
  - DEPRESSED LEVEL OF CONSCIOUSNESS [None]
  - DISORIENTATION [None]
  - DYSPHAGIA [None]
  - EXTRAPYRAMIDAL DISORDER [None]
  - GAIT DISTURBANCE [None]
  - HALLUCINATION [None]
  - HYPERSENSITIVITY [None]
  - INSOMNIA [None]
  - MENTAL DISORDER [None]
  - MYOTONIA [None]
  - MYOTONIA CONGENITA [None]
  - NEUROLEPTIC MALIGNANT SYNDROME [None]
  - NEUROSIS [None]
  - PAIN [None]
  - PNEUMONIA [None]
  - PO2 DECREASED [None]
  - PSYCHOMOTOR HYPERACTIVITY [None]
  - RENAL FAILURE ACUTE [None]
  - RESTLESSNESS [None]
  - SOMNOLENCE [None]
